FAERS Safety Report 12015312 (Version 1)
Quarter: 2016Q1

REPORT INFORMATION
  Report Type: Spontaneous
  Country: US (occurrence: US)
  Receive Date: 20160205
  Receipt Date: 20160205
  Transmission Date: 20160526
  Serious: No
  Sender: FDA-Public Use
  Company Number: US-AMGEN-USASP2015028703

PATIENT
  Age: 59 Year
  Sex: Female

DRUGS (7)
  1. NEULASTA [Suspect]
     Active Substance: PEGFILGRASTIM
     Indication: RESPIRATORY TRACT NEOPLASM
     Dosage: UNK UNK, UNK
     Route: 065
  2. XGEVA [Suspect]
     Active Substance: DENOSUMAB
     Indication: GASTROINTESTINAL NEOPLASM
  3. NEULASTA [Suspect]
     Active Substance: PEGFILGRASTIM
     Indication: BREAST NEOPLASM
  4. XGEVA [Suspect]
     Active Substance: DENOSUMAB
     Indication: BREAST NEOPLASM
  5. NEULASTA [Suspect]
     Active Substance: PEGFILGRASTIM
     Indication: BONE CANCER METASTATIC
  6. XGEVA [Suspect]
     Active Substance: DENOSUMAB
     Indication: RESPIRATORY TRACT NEOPLASM
     Dosage: UNK UNK, UNK
     Route: 065
  7. NEULASTA [Suspect]
     Active Substance: PEGFILGRASTIM
     Indication: GASTROINTESTINAL NEOPLASM

REACTIONS (1)
  - Off label use [Unknown]
